FAERS Safety Report 6499117-X (Version None)
Quarter: 2009Q4

REPORT INFORMATION
  Report Type: 
  Country: None (occurrence: None)
  Receive Date: 20091215
  Receipt Date: 20091203
  Transmission Date: 20100525
  Serious: Yes (Other)
  Sender: FDA-Public Use
  Company Number: US-ELI_LILLY_AND_COMPANY-US200912001300

PATIENT
  Sex: Female

DRUGS (1)
  1. FORTEO [Suspect]
     Dates: start: 20081101

REACTIONS (5)
  - BONE NEOPLASM [None]
  - FALL [None]
  - FOOT FRACTURE [None]
  - INFLAMMATION [None]
  - MUSCULOSKELETAL PAIN [None]
